FAERS Safety Report 4376233-X (Version None)
Quarter: 2004Q2

REPORT INFORMATION
  Report Type: 
  Country: None (occurrence: None)
  Receive Date: 20040608
  Receipt Date: 20030327
  Transmission Date: 20050107
  Serious: Yes (Other)
  Sender: FDA-Public Use
  Company Number: 200311029BCC

PATIENT
  Age: 40 Year
  Sex: Male
  Weight: 136.0791 kg

DRUGS (1)
  1. ALEVE [Suspect]
     Indication: ARTHRALGIA
     Dosage: 440 MG, BID, ORAL
     Route: 048
     Dates: end: 20030324

REACTIONS (1)
  - RECTAL HAEMORRHAGE [None]
